FAERS Safety Report 24057429 (Version 1)
Quarter: 2024Q3

REPORT INFORMATION
  Report Type: Report from Study
  Country: CO (occurrence: CO)
  Receive Date: 20240706
  Receipt Date: 20240706
  Transmission Date: 20241017
  Serious: Yes (Other)
  Sender: ABBVIE
  Company Number: CO-ABBVIE-5773328

PATIENT
  Sex: Female
  Weight: 69 kg

DRUGS (4)
  1. SKYRIZI [Suspect]
     Active Substance: RISANKIZUMAB-RZAA
     Indication: Psoriasis
     Dosage: FORM STRENGTH: 150 MILLIGRAM
     Route: 058
     Dates: start: 20231031, end: 20240123
  2. SKYRIZI [Suspect]
     Active Substance: RISANKIZUMAB-RZAA
     Dosage: FORM STRENGTH: 150 MILLIGRAM
     Route: 058
     Dates: start: 20240527
  3. LOTEPREDNOL ETABONATE [Concomitant]
     Active Substance: LOTEPREDNOL ETABONATE
     Indication: Postoperative care
     Dosage: UNKNOWN, APPLIES IN RIGHT EYE
     Route: 047
     Dates: start: 202405
  4. Hialub [Concomitant]
     Indication: Postoperative care
     Dosage: UNKNOWN, APPLIES IN RIGHT EYE
     Route: 047
     Dates: start: 202405

REACTIONS (4)
  - Eye disorder [Unknown]
  - Eye injury [Unknown]
  - Eye disorder [Not Recovered/Not Resolved]
  - Visual impairment [Unknown]

NARRATIVE: CASE EVENT DATE: 20240101
